FAERS Safety Report 5785966-X (Version None)
Quarter: 2008Q2

REPORT INFORMATION
  Report Type: 
  Country: None (occurrence: None)
  Receive Date: 20080624
  Receipt Date: 20080610
  Transmission Date: 20081010
  Serious: Yes (Other)
  Sender: FDA-Public Use
  Company Number: PHBS2007BR13074

PATIENT
  Sex: Female

DRUGS (4)
  1. TRILEPTAL [Suspect]
     Dosage: 300 MG, 300 MG AND 600 MG/DAY
     Route: 048
  2. TRILEPTAL [Suspect]
     Dosage: 300 MG, 600 MG AND 600 MG/DAY
     Route: 048
  3. GARDENAL [Concomitant]
  4. APRESOLINE [Concomitant]

REACTIONS (4)
  - ABNORMAL FAECES [None]
  - ESCHERICHIA INFECTION [None]
  - LETHARGY [None]
  - TREMOR [None]
